FAERS Safety Report 19449767 (Version 3)
Quarter: 2021Q3

REPORT INFORMATION
  Report Type: Report from Study
  Country: GB (occurrence: GB)
  Receive Date: 20210622
  Receipt Date: 20210806
  Transmission Date: 20211014
  Serious: No
  Sender: FDA-Public Use
  Company Number: GB-GW PHARMA-202106GBGW02955

PATIENT

DRUGS (7)
  1. EPIDYOLEX [Suspect]
     Active Substance: CANNABIDIOL
     Indication: LENNOX-GASTAUT SYNDROME
     Dosage: 15 MG/KG/DAY, 450 MILLIGRAM, QD
     Route: 048
     Dates: start: 20200501, end: 2020
  2. SODIUM VALPROATE [Concomitant]
     Active Substance: VALPROATE SODIUM
     Indication: PRODUCT USED FOR UNKNOWN INDICATION
     Dosage: 600 MILLIGRAM, BID
     Route: 065
  3. CLOBAZAM. [Suspect]
     Active Substance: CLOBAZAM
     Dosage: 3 MILLIGRAM, BID (GRADUALLY REDUCED TO 3 MG BID)
     Route: 065
     Dates: start: 2020
  4. EPIDYOLEX [Suspect]
     Active Substance: CANNABIDIOL
     Dosage: 10 MG/KG/ DAY, 150 MILLIGRAM, BID
     Route: 048
  5. EPIDYOLEX [Suspect]
     Active Substance: CANNABIDIOL
     Dosage: 10 MG/KG/DAY, 150 MILLIGRAM, BID
     Route: 048
     Dates: start: 2020
  6. CLOBAZAM. [Suspect]
     Active Substance: CLOBAZAM
     Indication: PRODUCT USED FOR UNKNOWN INDICATION
     Dosage: 20 MILLIGRAM, QD (5 MG, 5 MG AND 10 MG)
     Route: 065
     Dates: end: 2020
  7. EPIDYOLEX [Suspect]
     Active Substance: CANNABIDIOL
     Dosage: 4.66 MG/KG/DAY, 70 MILLIGRAM, BID (DECREASED DUE TO EVENT)
     Route: 048
     Dates: start: 2020

REACTIONS (1)
  - Sedation [Recovered/Resolved]

NARRATIVE: CASE EVENT DATE: 20200519
